FAERS Safety Report 14988929 (Version 2)
Quarter: 2018Q2

REPORT INFORMATION
  Report Type: Spontaneous
  Country: DE (occurrence: DE)
  Receive Date: 20180608
  Receipt Date: 20180626
  Transmission Date: 20180711
  Serious: Yes (Hospitalization)
  Sender: FDA-Public Use
  Company Number: DE-PFIZER INC-2018199359

PATIENT
  Age: 77 Year
  Sex: Female

DRUGS (16)
  1. AMLODIPINE BESILATE [Suspect]
     Active Substance: AMLODIPINE BESYLATE
     Dosage: 10 MG, 1X/DAY, 0-0-0-1
     Route: 065
  2. TORASEMID [Suspect]
     Active Substance: TORSEMIDE
     Dosage: 10 MG, 1X/DAY, 1-0-0-0
     Route: 065
  3. ISOPHANE INSULIN [Concomitant]
     Active Substance: INSULIN NOS
     Dosage: NK IE, NK
     Route: 065
  4. INSULIN HUMAN [Concomitant]
     Active Substance: INSULIN HUMAN
     Dosage: NK IE, NK
     Route: 065
  5. NIFEDIPINE. [Suspect]
     Active Substance: NIFEDIPINE
     Dosage: UNK MG, AS NEEDED
     Route: 065
  6. CARVEDILOL. [Suspect]
     Active Substance: CARVEDILOL
     Dosage: 25 MG, 1-0-0-1
     Route: 065
  7. CARVEDILOL. [Suspect]
     Active Substance: CARVEDILOL
     Dosage: 50 MG, 1X/DAY
     Route: 065
  8. VALSARTAN. [Suspect]
     Active Substance: VALSARTAN
     Dosage: 160 MG, 1-0-1-0
  9. MOXONIDINE [Suspect]
     Active Substance: MOXONIDINE
     Dosage: 0.4 MG,1-0-0-1
     Route: 065
  10. ACETYLSALICYLIC ACID [Concomitant]
     Active Substance: ASPIRIN
     Dosage: 100 MG, 1X/DAY, 1-0-0-0
     Route: 065
  11. PREGABALIN. [Suspect]
     Active Substance: PREGABALIN
     Dosage: 25 MG, 1X/DAY, 0-0-1-0
     Route: 065
  12. VALSARTAN. [Suspect]
     Active Substance: VALSARTAN
     Dosage: 320 MG, 1X/DAY
     Route: 065
  13. MOXONIDINE [Suspect]
     Active Substance: MOXONIDINE
     Dosage: 0.8 MG, 1X/DAY
     Route: 065
  14. METAMIZOLE [Concomitant]
     Active Substance: METAMIZOLE
     Dosage: 30-30-30-30, DROPS
  15. METAMIZOLE [Concomitant]
     Active Substance: METAMIZOLE
     Dosage: 120 DF, 1X/DAY
     Route: 065
  16. PANTOPRAZOL [Concomitant]
     Active Substance: PANTOPRAZOLE SODIUM
     Dosage: 40 MG, 1X/DAY,  1-0-0-0
     Route: 065

REACTIONS (4)
  - Spinal pain [Not Recovered/Not Resolved]
  - Musculoskeletal pain [Not Recovered/Not Resolved]
  - Pain in extremity [Not Recovered/Not Resolved]
  - Fall [Unknown]
